FAERS Safety Report 9369259 (Version 2)
Quarter: 2013Q2

REPORT INFORMATION
  Report Type: Spontaneous
  Country: GB (occurrence: GB)
  Receive Date: 20130626
  Receipt Date: 20130626
  Transmission Date: 20140414
  Serious: Yes (Disabling, Other)
  Sender: FDA-Public Use
  Company Number: PHHY2013GB060440

PATIENT
  Age: 62 Year
  Sex: Female
  Weight: 80 kg

DRUGS (9)
  1. STALEVO [Suspect]
     Indication: PARKINSON^S DISEASE
     Dosage: 200/125/31.25MG
     Route: 048
     Dates: start: 2011
  2. DULOXETINE [Concomitant]
     Dosage: 60 MG, EVERY MORNING
     Dates: start: 2009
  3. OMEPRAZOLE [Concomitant]
     Dosage: 20 MG, EVERY MORNING
     Dates: start: 2009
  4. AMLODIPINE [Concomitant]
     Dosage: 5 MG, EVERY NIGHT
     Dates: start: 2009
  5. CANDESARTAN [Concomitant]
     Dosage: 8 MG, EVERY NIGHT
     Dates: start: 2009
  6. PRAMIPEXOLE [Concomitant]
     Dosage: 1.05 MG, MODIFIED RELEASE EVERY NIGHT
     Dates: start: 2009
  7. FYBOGEL [Concomitant]
     Dosage: 2 (UNSPECIFIED UNIT) EVERY MORNING
     Dates: start: 2009
  8. SIMVASTATIN [Concomitant]
     Dosage: 20 MG, EVERY NIGHT
     Dates: start: 2009
  9. VITAMAN [Concomitant]
     Dosage: DAILY

REACTIONS (3)
  - Freezing phenomenon [Not Recovered/Not Resolved]
  - On and off phenomenon [Not Recovered/Not Resolved]
  - Quality of life decreased [None]
